FAERS Safety Report 17245121 (Version 1)
Quarter: 2020Q1

REPORT INFORMATION
  Report Type: Spontaneous
  Country: AT (occurrence: AT)
  Receive Date: 20200108
  Receipt Date: 20200108
  Transmission Date: 20200409
  Serious: Yes (Hospitalization, Disabling, Other)
  Sender: FDA-Public Use
  Company Number: AT-AMGEN-AUTSP2020000333

PATIENT
  Age: 52 Year
  Sex: Female
  Weight: 57 kg

DRUGS (4)
  1. EUTHYROX [Suspect]
     Active Substance: LEVOTHYROXINE SODIUM
     Indication: ILL-DEFINED DISORDER
     Dosage: 88 MICROGRAM, QD
     Route: 048
     Dates: start: 201801
  2. ARIMIDEX [Suspect]
     Active Substance: ANASTROZOLE
     Indication: BREAST CANCER
     Dosage: 1 MILLIGRAM, QD
     Route: 048
     Dates: start: 201711
  3. PROLIA [Suspect]
     Active Substance: DENOSUMAB
     Indication: OSTEOPENIA
     Dosage: 60 MILLIGRAM, Q6MO
     Route: 058
     Dates: start: 201810
  4. CALCIDURAN [Suspect]
     Active Substance: ASCORBIC ACID\CALCIUM PHOSPHATE\CHOLECALCIFEROL\CITRIC ACID MONOHYDRATE
     Indication: OSTEOPENIA
     Dosage: 600MG/ 400I.E,BID
     Route: 048
     Dates: start: 201907

REACTIONS (5)
  - Tendon pain [Recovered/Resolved]
  - Oedema peripheral [Not Recovered/Not Resolved]
  - Radius fracture [Recovered/Resolved with Sequelae]
  - Tendon rupture [Recovering/Resolving]
  - Tenosynovitis [Not Recovered/Not Resolved]

NARRATIVE: CASE EVENT DATE: 201803
